FAERS Safety Report 6083066-5 (Version None)
Quarter: 2009Q1

REPORT INFORMATION
  Report Type: 
  Country: None (occurrence: None)
  Receive Date: 20090218
  Receipt Date: 20090211
  Transmission Date: 20090719
  Serious: Yes (Hospitalization)
  Sender: FDA-Public Use
  Company Number: PL-MERCK-0902POL00004

PATIENT
  Age: 17 Year
  Sex: Female
  Weight: 56 kg

DRUGS (9)
  1. BUDESONIDE [Concomitant]
     Indication: ASTHMA
     Dates: start: 20080625
  2. FORMOTEROL FUMARATE [Concomitant]
     Indication: ASTHMA
     Dates: start: 20080625
  3. SINGULAIR [Suspect]
     Indication: ASTHMA
     Route: 048
     Dates: start: 20051001, end: 20060101
  4. SINGULAIR [Suspect]
     Route: 048
     Dates: start: 20060101, end: 20080601
  5. SINGULAIR [Suspect]
     Route: 048
     Dates: start: 20080601, end: 20081215
  6. SINGULAIR [Suspect]
     Indication: RHINITIS ALLERGIC
     Route: 048
     Dates: start: 20051001, end: 20060101
  7. SINGULAIR [Suspect]
     Route: 048
     Dates: start: 20060101, end: 20080601
  8. SINGULAIR [Suspect]
     Route: 048
     Dates: start: 20080601, end: 20081215
  9. CORTICOSTEROIDS (UNSPECIFIED) [Concomitant]
     Indication: ASTHMA
     Route: 065
     Dates: end: 20080624

REACTIONS (6)
  - ANXIETY [None]
  - ASTHMA [None]
  - DEPRESSION [None]
  - DRUG ADMINISTRATION ERROR [None]
  - DRUG INEFFECTIVE [None]
  - SLEEP TERROR [None]
